FAERS Safety Report 23806961 (Version 1)
Quarter: 2024Q2

REPORT INFORMATION
  Report Type: Spontaneous
  Country: US (occurrence: US)
  Receive Date: 20240502
  Receipt Date: 20240502
  Transmission Date: 20240716
  Serious: No
  Sender: FDA-Public Use
  Company Number: US-RECKITT BENCKISER HEALTHCARE INT LIMITED-RB-103604-2023

PATIENT
  Age: 89 Year
  Sex: Female
  Weight: 59.09 kg

DRUGS (2)
  1. MUCINEX DM [Suspect]
     Active Substance: DEXTROMETHORPHAN HYDROBROMIDE\GUAIFENESIN
     Indication: Illness
     Dosage: 1/2 TABLET
     Route: 048
     Dates: start: 20230723, end: 20230724
  2. ASPIRIN [Concomitant]
     Active Substance: ASPIRIN
     Indication: Chronic obstructive pulmonary disease
     Dosage: UNK
     Route: 065

REACTIONS (2)
  - Chest discomfort [Recovering/Resolving]
  - Wrong technique in product usage process [Recovering/Resolving]
